FAERS Safety Report 23593212 (Version 1)
Quarter: 2024Q1

REPORT INFORMATION
  Report Type: Spontaneous
  Country: NO (occurrence: NO)
  Receive Date: 20240304
  Receipt Date: 20240304
  Transmission Date: 20240410
  Serious: Yes (Hospitalization)
  Sender: FDA-Public Use
  Company Number: None

PATIENT
  Age: 58 Year
  Sex: Female

DRUGS (4)
  1. LIDOCAINE [Suspect]
     Active Substance: LIDOCAINE
     Indication: Fibromyalgia
     Dosage: UNK
     Route: 065
     Dates: start: 20230915, end: 20230915
  2. LIDOCAINE [Suspect]
     Active Substance: LIDOCAINE
     Indication: Pain
  3. Paralgin forte [Concomitant]
     Dosage: ONE TABLET
     Route: 065
     Dates: start: 20230915, end: 20230915
  4. VALIUM [Concomitant]
     Active Substance: DIAZEPAM
     Dosage: ONE TABLET, UNKNOWN DOSE.
     Route: 065
     Dates: start: 20230915, end: 20230915

REACTIONS (2)
  - Respiratory arrest [Recovered/Resolved]
  - Syncope [Recovered/Resolved]

NARRATIVE: CASE EVENT DATE: 20230915
